FAERS Safety Report 10142530 (Version 1)
Quarter: 2014Q2

REPORT INFORMATION
  Report Type: Spontaneous
  Country: US (occurrence: US)
  Receive Date: 20140430
  Receipt Date: 20140430
  Transmission Date: 20141212
  Serious: No
  Sender: FDA-Public Use
  Company Number: US-009507513-1404USA010811

PATIENT
  Age: 70 Year
  Sex: Male

DRUGS (1)
  1. INTRONA [Suspect]
     Dosage: UNK
     Route: 058

REACTIONS (2)
  - Infusion site scab [Unknown]
  - Injection site infection [Unknown]
